FAERS Safety Report 17591711 (Version 1)
Quarter: 2020Q1

REPORT INFORMATION
  Report Type: Spontaneous
  Country: CA (occurrence: CA)
  Receive Date: 20200327
  Receipt Date: 20200327
  Transmission Date: 20200409
  Serious: Yes (Disabling)
  Sender: FDA-Public Use
  Company Number: NVSC2020CA085337

PATIENT
  Age: 40 Year
  Sex: Female
  Weight: 72.56 kg

DRUGS (1)
  1. SANDOZ LOSARTAN [Suspect]
     Active Substance: LOSARTAN POTASSIUM
     Indication: HYPERTENSION
     Dosage: 25 MG, QD
     Route: 048

REACTIONS (2)
  - Oropharyngeal pain [Recovered/Resolved]
  - Pruritus [Recovered/Resolved]
